FAERS Safety Report 17056025 (Version 2)
Quarter: 2019Q4

REPORT INFORMATION
  Report Type: Report from Study
  Country: US (occurrence: US)
  Receive Date: 20191121
  Receipt Date: 20191219
  Transmission Date: 20200122
  Serious: No
  Sender: FDA-Public Use
  Company Number: NVSC2019US039590

PATIENT
  Age: 66 Year
  Sex: Female

DRUGS (2)
  1. BEOVU [Suspect]
     Active Substance: BROLUCIZUMAB-DBLL
     Dosage: 1 DF (ONE SINGLE DOSE)
     Route: 047
     Dates: start: 20191203
  2. BEOVU [Suspect]
     Active Substance: BROLUCIZUMAB-DBLL
     Indication: NEOVASCULAR AGE-RELATED MACULAR DEGENERATION
     Dosage: 1 DF (ONE SINGLE DOSE)
     Route: 047
     Dates: start: 20191105

REACTIONS (6)
  - Visual impairment [Unknown]
  - Diarrhoea [Unknown]
  - Nausea [Unknown]
  - Dry eye [Unknown]
  - Abdominal pain [Unknown]
  - Vision blurred [Unknown]

NARRATIVE: CASE EVENT DATE: 20191105
